FAERS Safety Report 5712741-4 (Version None)
Quarter: 2008Q2

REPORT INFORMATION
  Report Type: 
  Country: None (occurrence: None)
  Receive Date: 20080422
  Receipt Date: 20080416
  Transmission Date: 20081010
  Serious: Yes (Hospitalization)
  Sender: FDA-Public Use
  Company Number: JP-BAYER-200810713BYL

PATIENT
  Age: 72 Year
  Sex: Female

DRUGS (1)
  1. ASPIRIN [Suspect]
     Indication: CEREBRAL INFARCTION
     Route: 048

REACTIONS (2)
  - ANAEMIA [None]
  - SMALL INTESTINE ULCER [None]
